FAERS Safety Report 24774850 (Version 1)
Quarter: 2024Q4

REPORT INFORMATION
  Report Type: Spontaneous
  Country: CH (occurrence: CH)
  Receive Date: 20241226
  Receipt Date: 20241226
  Transmission Date: 20250115
  Serious: Yes (Hospitalization, Other)
  Sender: AMGEN
  Company Number: CH-AMGEN-CHESP2024249502

PATIENT
  Age: 35 Year
  Sex: Female
  Weight: 42.7 kg

DRUGS (7)
  1. ARANESP [Suspect]
     Active Substance: DARBEPOETIN ALFA
     Indication: Haemolytic anaemia
     Dosage: 150 MICROGRAM, Q3WK
     Route: 058
     Dates: start: 20220311, end: 20220608
  2. ARANESP [Suspect]
     Active Substance: DARBEPOETIN ALFA
     Dosage: 150 MICROGRAM, Q3WK
     Route: 058
     Dates: start: 20230224, end: 20230422
  3. ARANESP [Suspect]
     Active Substance: DARBEPOETIN ALFA
     Dosage: 300 MILLIGRAM (TOTAL)
     Route: 065
     Dates: start: 20241107, end: 20241107
  4. OXBRYTA [Suspect]
     Active Substance: VOXELOTOR
     Indication: Sickle cell anaemia
     Dosage: 1500 MILLIGRAM
     Route: 048
     Dates: start: 202406, end: 202411
  5. ASPIRIN [Concomitant]
     Active Substance: ASPIRIN
     Route: 048
  6. HYDROXYCARBAMID LABATEC [Concomitant]
     Indication: Sickle cell anaemia
     Route: 048
  7. FOLIC ACID [Concomitant]
     Active Substance: FOLIC ACID
     Route: 048

REACTIONS (1)
  - Sickle cell anaemia with crisis [Recovering/Resolving]

NARRATIVE: CASE EVENT DATE: 20241109
